APPROVED DRUG PRODUCT: UNITHROID
Active Ingredient: LEVOTHYROXINE SODIUM
Strength: 0.3MG **See current Annual Edition, 1.8 Description of Special Situations, Levothyroxine Sodium
Dosage Form/Route: TABLET;ORAL
Application: N021210 | Product #011 | TE Code: AB1,AB2,AB3
Applicant: JEROME STEVENS PHARMACEUTICALS INC
Approved: Aug 21, 2000 | RLD: Yes | RS: Yes | Type: RX